FAERS Safety Report 8515424-0 (Version None)
Quarter: 2012Q3

REPORT INFORMATION
  Report Type: 
  Country: None (occurrence: None)
  Receive Date: 20120705
  Receipt Date: 20120625
  Transmission Date: 20120928
  Serious: Yes (Other)
  Sender: FDA-Public Use
  Company Number: AUR-APL-2012-02767

PATIENT
  Age: 62 Year
  Sex: Female

DRUGS (2)
  1. COLOFAC (MEBEVERINE HYDROCHLORIDE) [Concomitant]
  2. AMLODIPINE [Suspect]
     Indication: HYPERTENSION
     Dosage: 5 MG (5 MG, 1 IN 1 D),ORAL
     Route: 048
     Dates: start: 20120517, end: 20120606

REACTIONS (3)
  - SKIN BURNING SENSATION [None]
  - DIARRHOEA [None]
  - HYPOTHYROIDISM [None]
